FAERS Safety Report 6739320-4 (Version None)
Quarter: 2010Q2

REPORT INFORMATION
  Report Type: 
  Country: None (occurrence: None)
  Receive Date: 20100525
  Receipt Date: 20100511
  Transmission Date: 20101027
  Serious: Yes (Hospitalization)
  Sender: FDA-Public Use
  Company Number: GB-CELGENEUS-167-50794-10051058

PATIENT
  Age: 82 Year
  Sex: Female

DRUGS (9)
  1. VIDAZA [Suspect]
     Route: 058
     Dates: start: 20070205, end: 20070209
  2. VIDAZA [Suspect]
     Route: 058
     Dates: start: 20070305, end: 20070306
  3. VIDAZA [Suspect]
     Route: 058
     Dates: start: 20070402, end: 20070406
  4. VIDAZA [Suspect]
     Route: 058
     Dates: end: 20080404
  5. VALPROATE SODIUM [Suspect]
     Route: 048
     Dates: start: 20070205
  6. VALPROATE SODIUM [Suspect]
     Route: 048
     Dates: end: 20070405
  7. VALPROATE SODIUM [Suspect]
     Route: 048
     Dates: end: 20080408
  8. ATRA [Suspect]
     Route: 048
     Dates: start: 20070205, end: 20080408
  9. THEOPHYLLINE [Suspect]
     Route: 048
     Dates: start: 20070205, end: 20070405

REACTIONS (6)
  - ANGINA PECTORIS [None]
  - ATRIAL FIBRILLATION [None]
  - CONFUSIONAL STATE [None]
  - INFECTION [None]
  - NEUTROPENIA [None]
  - PYREXIA [None]
